FAERS Safety Report 5999336-2 (Version None)
Quarter: 2008Q4

REPORT INFORMATION
  Report Type: 
  Country: None (occurrence: None)
  Receive Date: 20081211
  Receipt Date: 20081126
  Transmission Date: 20090506
  Serious: Yes (Other)
  Sender: FDA-Public Use
  Company Number: 232032K08USA

PATIENT
  Age: 68 Year
  Sex: Female
  Weight: 57 kg

DRUGS (5)
  1. REBIF [Suspect]
     Indication: MULTIPLE SCLEROSIS
     Dosage: 44 MCG, 3 IN 1 WEEKS, SUBCUTANEOUS
     Route: 058
     Dates: start: 20060201, end: 20081126
  2. TIZANIDINE HCL [Concomitant]
  3. CALCIUM (CALCIUM-S-ANDOZ /00009901/) [Concomitant]
  4. GLUCOSAMINE WITHCHONDROITIN SULFATE (GLUCOSAMINE W/ CHONDROITIN) [Concomitant]
  5. ALEVE (CAPLET) [Concomitant]

REACTIONS (4)
  - BREAST CANCER FEMALE [None]
  - LIVER DISORDER [None]
  - METASTASES TO LYMPH NODES [None]
  - SPINAL DISORDER [None]
